FAERS Safety Report 21048942 (Version 2)
Quarter: 2022Q3

REPORT INFORMATION
  Report Type: Spontaneous
  Country: US (occurrence: US)
  Receive Date: 20220706
  Receipt Date: 20220824
  Transmission Date: 20221027
  Serious: No
  Sender: FDA-Public Use
  Company Number: US-PFIZER INC-202200920742

PATIENT
  Age: 68 Year
  Sex: Female
  Weight: 147.39 kg

DRUGS (7)
  1. PAXLOVID [Suspect]
     Active Substance: NIRMATRELVIR\RITONAVIR
     Indication: COVID-19 treatment
     Dosage: 10 MG, 2X/DAY
     Dates: start: 20220516, end: 20220520
  2. PRAVASTATIN [Concomitant]
     Active Substance: PRAVASTATIN
     Dosage: UNK
     Dates: start: 20000103
  3. TRISOL [POTASSIUM CHLORIDE;SODIUM BICARBONATE] [Concomitant]
     Dosage: UNK
     Dates: start: 20190101
  4. BUMETANIDE [Concomitant]
     Active Substance: BUMETANIDE
     Dosage: UNK
     Dates: start: 20000103
  5. PRILOSEC [Concomitant]
     Active Substance: OMEPRAZOLE MAGNESIUM
     Dosage: UNK
     Dates: start: 20150101
  6. ADVIL [Concomitant]
     Active Substance: IBUPROFEN
     Indication: Cough
     Dosage: EVERY 6 HRS
  7. TYLENOL 8HR [Concomitant]
     Active Substance: ACETAMINOPHEN
     Dosage: EVERY 8 HRS

REACTIONS (2)
  - COVID-19 [Recovered/Resolved]
  - Product prescribing error [Unknown]

NARRATIVE: CASE EVENT DATE: 20220516
